FAERS Safety Report 8079922-9 (Version None)
Quarter: 2012Q1

REPORT INFORMATION
  Report Type: 
  Country: None (occurrence: None)
  Receive Date: 20120128
  Receipt Date: 20110722
  Transmission Date: 20120608
  Serious: No
  Sender: FDA-Public Use
  Company Number: US-ABBOTT-11P-163-0841182-00

PATIENT
  Age: 29 Year
  Sex: Female

DRUGS (5)
  1. HUMIRA [Suspect]
     Indication: CROHN'S DISEASE
     Dates: start: 20110601
  2. ASACOL HD [Concomitant]
     Indication: CROHN'S DISEASE
  3. ENTOCORT EC [Concomitant]
     Indication: CROHN'S DISEASE
  4. XIFAXAN [Concomitant]
     Indication: CROHN'S DISEASE
  5. METRONIDAZOLE [Concomitant]
     Indication: CROHN'S DISEASE

REACTIONS (2)
  - ERYTHEMA [None]
  - HEAVY EXPOSURE TO ULTRAVIOLET LIGHT [None]
